FAERS Safety Report 4569425-8 (Version None)
Quarter: 2005Q1

REPORT INFORMATION
  Report Type: 
  Country: None (occurrence: None)
  Receive Date: 20050201
  Receipt Date: 20050121
  Transmission Date: 20050727
  Serious: Yes (Other)
  Sender: FDA-Public Use
  Company Number: 2004110660

PATIENT
  Age: 83 Year
  Sex: Female
  Weight: 43.0917 kg

DRUGS (3)
  1. NORVASC [Suspect]
     Indication: ILL-DEFINED DISORDER
     Dosage: (2.5 MG)
  2. UNSPECIFIED BLOOD PRESSURE MEDICINES (ANTIHYPERTENSIVES) [Suspect]
     Indication: ILL-DEFINED DISORDER
  3. CLONIDINE [Concomitant]
     Indication: ILL-DEFINED DISORDER
     Dosage: 0.1 MG

REACTIONS (6)
  - DERMATITIS [None]
  - NEUROPATHY PERIPHERAL [None]
  - OEDEMA PERIPHERAL [None]
  - PRURITUS [None]
  - RASH [None]
  - TRANSIENT ISCHAEMIC ATTACK [None]
